FAERS Safety Report 12643603 (Version 1)
Quarter: 2016Q3

REPORT INFORMATION
  Report Type: Report from Study
  Country: BR (occurrence: BR)
  Receive Date: 20160811
  Receipt Date: 20160811
  Transmission Date: 20161109
  Serious: Yes (Death, Hospitalization, Other)
  Sender: FDA-Public Use
  Company Number: PHHY2016BR109983

PATIENT
  Age: 72 Year
  Sex: Female
  Weight: 68 kg

DRUGS (2)
  1. DIOVAN HCT [Suspect]
     Active Substance: HYDROCHLOROTHIAZIDE\VALSARTAN
     Indication: HYPERTENSION
     Dosage: 1 DF (HYDROCHLOROTHIAZIDE 12.5 MG, VALSARTAN 160 MG), QD (IN THE MORNING)
     Route: 048
  2. DIOVAN HCT [Suspect]
     Active Substance: HYDROCHLOROTHIAZIDE\VALSARTAN
     Dosage: 2 DF, QD
     Route: 065

REACTIONS (12)
  - Emphysema [Fatal]
  - Concomitant disease aggravated [Fatal]
  - Neoplasm malignant [Unknown]
  - Malaise [Unknown]
  - Fatigue [Unknown]
  - Bronchostenosis [Fatal]
  - Blood pressure decreased [Fatal]
  - Blood pressure increased [Unknown]
  - Lung disorder [Fatal]
  - Dyspnoea [Fatal]
  - Blood pressure fluctuation [Unknown]
  - Pulmonary mass [Unknown]

NARRATIVE: CASE EVENT DATE: 20160621
